FAERS Safety Report 8215560-2 (Version None)
Quarter: 2012Q1

REPORT INFORMATION
  Report Type: 
  Country: None (occurrence: None)
  Receive Date: 20120316
  Receipt Date: 20120316
  Transmission Date: 20120608
  Serious: Yes (Hospitalization)
  Sender: FDA-Public Use
  Company Number: PR-ABBOTT-12P-131-0909037-00

PATIENT
  Sex: Female
  Weight: 70.37 kg

DRUGS (2)
  1. CELEBREX [Concomitant]
     Indication: PAIN
     Route: 048
     Dates: start: 20020101
  2. HUMIRA [Suspect]
     Indication: RHEUMATOID ARTHRITIS
     Route: 058
     Dates: start: 20060101, end: 20120101

REACTIONS (1)
  - OSTEOARTHRITIS [None]
